FAERS Safety Report 12528666 (Version 1)
Quarter: 2016Q3

REPORT INFORMATION
  Report Type: Spontaneous
  Country: GB (occurrence: GB)
  Receive Date: 20160705
  Receipt Date: 20160705
  Transmission Date: 20161109
  Serious: Yes (Other)
  Sender: FDA-Public Use
  Company Number: GB-WATSON-2016-14078

PATIENT
  Age: 40 Year

DRUGS (2)
  1. ARIPIPRAZOLE. [Concomitant]
     Active Substance: ARIPIPRAZOLE
     Indication: PSYCHOTIC DISORDER
     Dosage: 5 MG, DAILY
     Route: 065
  2. METOCLOPRAMIDE (UNKNOWN) [Suspect]
     Active Substance: METOCLOPRAMIDE
     Indication: GASTROOESOPHAGEAL REFLUX DISEASE
     Dosage: 10 MG, UNKNOWN
     Route: 042

REACTIONS (7)
  - Sedation [Unknown]
  - Salivary hypersecretion [Unknown]
  - Agitation [Unknown]
  - Oculogyric crisis [Unknown]
  - Musculoskeletal stiffness [Unknown]
  - Eye movement disorder [Unknown]
  - Dystonia [Unknown]

NARRATIVE: CASE EVENT DATE: 20160102
